FAERS Safety Report 21189676 (Version 1)
Quarter: 2022Q3

REPORT INFORMATION
  Report Type: Spontaneous
  Country: US (occurrence: US)
  Receive Date: 20220809
  Receipt Date: 20220809
  Transmission Date: 20221026
  Serious: Yes (Other)
  Sender: FDA-Public Use
  Company Number: US-PFIZER INC-202201042033

PATIENT

DRUGS (1)
  1. PAXLOVID [Suspect]
     Active Substance: NIRMATRELVIR\RITONAVIR
     Indication: COVID-19 treatment
     Dosage: UNK

REACTIONS (7)
  - Oropharyngeal blistering [Unknown]
  - Tongue discolouration [Unknown]
  - Tongue blistering [Unknown]
  - Malaise [Unknown]
  - Pyrexia [Unknown]
  - Oropharyngeal discomfort [Unknown]
  - COVID-19 [Unknown]
